FAERS Safety Report 4942665-1 (Version None)
Quarter: 2006Q1

REPORT INFORMATION
  Report Type: 
  Country: None (occurrence: None)
  Receive Date: 20060309
  Receipt Date: 20060222
  Transmission Date: 20060701
  Serious: Yes (Hospitalization)
  Sender: FDA-Public Use
  Company Number: 2006-CZ-00749

PATIENT
  Age: 4 Year
  Sex: Male

DRUGS (2)
  1. CECLOR [Suspect]
     Dosage: ORAL
     Route: 048
  2. SULTAMICILLIN [Concomitant]

REACTIONS (8)
  - ACUTE TONSILLITIS [None]
  - C-REACTIVE PROTEIN INCREASED [None]
  - DRUG INEFFECTIVE [None]
  - ECTHYMA [None]
  - GANGRENE [None]
  - LYMPH NODE PAIN [None]
  - SCAR [None]
  - STREPTOCOCCAL INFECTION [None]
